FAERS Safety Report 12946190 (Version 1)
Quarter: 2016Q4

REPORT INFORMATION
  Report Type: Spontaneous
  Country: US (occurrence: US)
  Receive Date: 20161115
  Receipt Date: 20161115
  Transmission Date: 20170207
  Serious: No
  Sender: FDA-Public Use
  Company Number: US-009507513-1611USA005866

PATIENT
  Sex: Female
  Weight: 95 kg

DRUGS (2)
  1. BRIDION [Suspect]
     Active Substance: SUGAMMADEX
     Indication: NEUROMUSCULAR BLOCKADE REVERSAL
     Dosage: 2 MG/KG, UNK
     Route: 042
  2. ZEMURON [Suspect]
     Active Substance: ROCURONIUM BROMIDE

REACTIONS (1)
  - Urticaria [Recovered/Resolved]
